FAERS Safety Report 7736478-5 (Version None)
Quarter: 2011Q3

REPORT INFORMATION
  Report Type: 
  Country: None (occurrence: None)
  Receive Date: 20110908
  Receipt Date: 20110902
  Transmission Date: 20111222
  Serious: Yes (Hospitalization)
  Sender: FDA-Public Use
  Company Number: JP-BRISTOL-MYERS SQUIBB COMPANY-16021727

PATIENT
  Age: 75 Year
  Sex: Female
  Weight: 55 kg

DRUGS (9)
  1. TAXOL [Suspect]
     Indication: OVARIAN CANCER
     Dates: start: 20110511
  2. DECADRON PHOSPHATE [Concomitant]
  3. LOXONIN [Concomitant]
  4. RAMELTEON [Concomitant]
  5. ZANTAC [Concomitant]
  6. ATARAX [Concomitant]
  7. VITAMEDIN [Concomitant]
  8. PARAPLATIN [Suspect]
     Indication: OVARIAN CANCER
     Dates: start: 20110511
  9. MOBIC [Concomitant]

REACTIONS (2)
  - VENOUS THROMBOSIS LIMB [None]
  - PULMONARY EMBOLISM [None]
